FAERS Safety Report 23077495 (Version 1)
Quarter: 2023Q4

REPORT INFORMATION
  Report Type: Spontaneous
  Country: AU (occurrence: AU)
  Receive Date: 20231018
  Receipt Date: 20231018
  Transmission Date: 20240110
  Serious: Yes (Hospitalization)
  Sender: FDA-Public Use
  Company Number: AU-ELI_LILLY_AND_COMPANY-AU202310000678

PATIENT
  Age: 57 Year
  Sex: Male

DRUGS (1)
  1. OLANZAPINE PAMOATE [Suspect]
     Active Substance: OLANZAPINE PAMOATE
     Indication: Product used for unknown indication
     Route: 030
     Dates: start: 20230919

REACTIONS (3)
  - Unresponsive to stimuli [Unknown]
  - Depressed level of consciousness [Unknown]
  - Post-injection delirium sedation syndrome [Unknown]

NARRATIVE: CASE EVENT DATE: 20230919
